FAERS Safety Report 4646774-6 (Version None)
Quarter: 2005Q2

REPORT INFORMATION
  Report Type: 
  Country: None (occurrence: None)
  Receive Date: 20050426
  Receipt Date: 20050426
  Transmission Date: 20051028
  Serious: Yes (Life-Threatening)
  Sender: FDA-Public Use
  Company Number: None

PATIENT
  Sex: Female
  Weight: 63.5036 kg

DRUGS (1)
  1. MAXALT [Suspect]
     Indication: MIGRAINE
     Dosage: 1    ORAL
     Route: 048
     Dates: start: 20041008, end: 20041008

REACTIONS (5)
  - CEREBRAL HAEMORRHAGE [None]
  - MALAISE [None]
  - NAUSEA [None]
  - PAIN [None]
  - VISUAL DISTURBANCE [None]
